FAERS Safety Report 6746121-X (Version None)
Quarter: 2010Q2

REPORT INFORMATION
  Report Type: 
  Country: None (occurrence: None)
  Receive Date: 20100528
  Receipt Date: 20091015
  Transmission Date: 20101027
  Serious: Yes (Other)
  Sender: FDA-Public Use
  Company Number: US-ASTRAZENECA-2009SE20358

PATIENT
  Sex: Female

DRUGS (2)
  1. PRILOSEC [Suspect]
     Indication: GASTROOESOPHAGEAL REFLUX DISEASE
     Route: 048
     Dates: start: 20091008, end: 20091011
  2. COUMADIN [Concomitant]
     Indication: THROMBOSIS

REACTIONS (1)
  - EPISTAXIS [None]
